FAERS Safety Report 7564492-1 (Version None)
Quarter: 2011Q2

REPORT INFORMATION
  Report Type: 
  Country: None (occurrence: None)
  Receive Date: 20110622
  Receipt Date: 20110617
  Transmission Date: 20111010
  Serious: Yes (Hospitalization, Other)
  Sender: FDA-Public Use
  Company Number: PHEH2008US08947

PATIENT
  Sex: Female

DRUGS (70)
  1. ZOMETA [Suspect]
     Dosage: UNK
     Dates: start: 20011101
  2. MEGESTROL ACETATE [Concomitant]
  3. METOLAZONE [Concomitant]
  4. ALPHAGAN [Concomitant]
     Dosage: GHS
  5. VICODIN [Concomitant]
     Dosage: UNK
  6. MUPIROCIN [Concomitant]
     Dosage: UNK
  7. HYDROCORTISONE [Concomitant]
  8. RELAFEN [Concomitant]
     Dosage: UNK
  9. DEXAMETHASONE [Concomitant]
     Dosage: 4 MG, QID
  10. FLUOXETINE HCL [Concomitant]
     Dosage: 20 MG, UNK
     Route: 048
  11. CEPHALEXIN [Concomitant]
  12. ACYCLOVIR [Concomitant]
  13. NYSTOP [Concomitant]
  14. MS CONTIN [Concomitant]
     Dosage: 15 MG
     Route: 048
  15. VINCRISTINE [Concomitant]
  16. LASIX [Concomitant]
     Dosage: 40 MG, DAILY
  17. KETOCONAZOLE [Concomitant]
     Dosage: UNK
  18. LEVOXYL [Concomitant]
  19. VANCOMYCIN [Concomitant]
  20. NABUMETONE [Concomitant]
  21. PROZAC [Concomitant]
     Dosage: 20 MG, DAILY
  22. LEVOFLOXACIN [Concomitant]
  23. KETOROLAC TROMETHAMINE [Concomitant]
  24. TEQUIN [Concomitant]
     Dosage: UNK
  25. COBALT [Concomitant]
  26. LIDOCAINE HCL VISCOUS [Concomitant]
  27. MORPHINE [Concomitant]
     Dosage: 15 MG, BID
     Route: 048
  28. LORAZEPAM [Concomitant]
  29. ROXANOL [Concomitant]
     Dosage: UNK
  30. WARFARIN SODIUM [Concomitant]
     Dosage: UNK
  31. MORPHINE SULFATE [Concomitant]
  32. AMBIEN [Concomitant]
  33. LYRICA [Concomitant]
     Dosage: 75 MG, UNK
     Route: 048
  34. PANAFIL [Concomitant]
  35. MELPHALAN HYDROCHLORIDE [Concomitant]
  36. CELEBREX [Concomitant]
  37. DILANTIN [Concomitant]
     Dosage: 100 MG, TID
  38. OXYCONTIN [Concomitant]
     Dosage: 80 MG, TID
  39. AREDIA [Suspect]
     Dosage: QMO
     Dates: end: 20040101
  40. FUROSEMIDE [Concomitant]
     Dosage: 40 MG, UNK
     Route: 048
  41. ALPHAGAN P [Concomitant]
  42. HYDROCODONE BITARTRATE AND ACETAMINOPHEN [Concomitant]
     Route: 048
  43. GABAPENTIN [Concomitant]
     Dosage: 100 MG, UNK
     Route: 048
  44. TRIAMCINOLONE [Concomitant]
  45. FLUCONAZOLE [Concomitant]
  46. PROCRIT [Concomitant]
  47. MEGACE [Concomitant]
  48. ZINACEF [Concomitant]
  49. DECADRON [Concomitant]
  50. NEUPOGEN [Concomitant]
  51. NEURONTIN [Concomitant]
     Dosage: 600 MG, BID
     Route: 048
  52. EPOGEN [Concomitant]
     Dosage: UNK
  53. TEMODAR [Concomitant]
     Dosage: 140 MG, QD
  54. THALIDOMIDE [Concomitant]
     Dosage: UNK
  55. POTASSIUM CHLORIDE [Concomitant]
     Dosage: 10 MG, BID
     Route: 048
  56. LEVOTHYROXINE SODIUM [Concomitant]
     Dosage: 50 MG, DAILY
  57. DARVOCET-N 50 [Concomitant]
  58. ZYVOX [Concomitant]
  59. CIPROFLOXACIN [Concomitant]
     Dosage: 500 MG, UNK
     Route: 048
  60. FAMOTIDINE [Concomitant]
  61. DIPHENHYDRAMINE HCL [Concomitant]
  62. OXYCODONE HCL [Concomitant]
     Dosage: UNK
  63. PREMARIN [Concomitant]
     Dosage: 1.25 MG, UNK
     Route: 048
  64. CIPROFLOXACIN HYDROCHLORIDE [Concomitant]
  65. ALBUTEROL [Concomitant]
  66. MYCOSTATIN [Concomitant]
  67. ADRIAMYCIN PFS [Concomitant]
  68. PROMETHAZINE [Concomitant]
  69. PHENERGAN HCL [Concomitant]
     Dosage: UNK
  70. PREDNISONE [Concomitant]
     Dosage: UNK

REACTIONS (100)
  - OSTEONECROSIS OF JAW [None]
  - BONE DISORDER [None]
  - SWELLING [None]
  - GINGIVAL SWELLING [None]
  - BRUXISM [None]
  - PNEUMONIA [None]
  - HYPOXIA [None]
  - GANGRENE [None]
  - EAR PAIN [None]
  - SPINAL OSTEOARTHRITIS [None]
  - PROTEIN URINE [None]
  - VISUAL IMPAIRMENT [None]
  - HEARING IMPAIRED [None]
  - TOOTHACHE [None]
  - CELLULITIS [None]
  - ANHEDONIA [None]
  - OSTEOMA [None]
  - GLAUCOMA [None]
  - HYPOTHYROIDISM [None]
  - OEDEMA PERIPHERAL [None]
  - OSTEOLYSIS [None]
  - BRONCHITIS [None]
  - HYPOAESTHESIA [None]
  - SPINAL COLUMN INJURY [None]
  - BACK PAIN [None]
  - STAPHYLOCOCCAL INFECTION [None]
  - PAIN [None]
  - PRIMARY SEQUESTRUM [None]
  - RENAL FAILURE CHRONIC [None]
  - ESCHERICHIA INFECTION [None]
  - PYELONEPHRITIS [None]
  - INTERVERTEBRAL DISC DEGENERATION [None]
  - SCOLIOSIS [None]
  - OSTEOPENIA [None]
  - BLOOD CREATININE INCREASED [None]
  - VAGINAL PROLAPSE [None]
  - DEPRESSION [None]
  - BONE FISSURE [None]
  - RENAL CYST [None]
  - HAEMATOCHEZIA [None]
  - INFECTED SKIN ULCER [None]
  - DIABETES MELLITUS [None]
  - DISABILITY [None]
  - INJURY [None]
  - GINGIVAL BLEEDING [None]
  - ANAEMIA [None]
  - FACIAL BONES FRACTURE [None]
  - FALL [None]
  - PANCYTOPENIA [None]
  - FEMORAL ARTERIAL STENOSIS [None]
  - MULTIPLE FRACTURES [None]
  - STRESS URINARY INCONTINENCE [None]
  - OSTEOARTHRITIS [None]
  - PAIN IN EXTREMITY [None]
  - THYROID NEOPLASM [None]
  - EAR HAEMORRHAGE [None]
  - PARAESTHESIA [None]
  - PLEURAL EFFUSION [None]
  - ANXIETY [None]
  - BLOOD LACTATE DEHYDROGENASE INCREASED [None]
  - CYSTOSCOPY [None]
  - HYPOKALAEMIA [None]
  - HAEMORRHAGE [None]
  - CEREBRAL INFARCTION [None]
  - SQUAMOUS CELL CARCINOMA [None]
  - ALTERED STATE OF CONSCIOUSNESS [None]
  - DYSPHAGIA [None]
  - PAIN IN JAW [None]
  - HIP FRACTURE [None]
  - PERIPHERAL COLDNESS [None]
  - SKIN ULCER [None]
  - ATELECTASIS [None]
  - NEUROPATHIC ULCER [None]
  - POOR PERIPHERAL CIRCULATION [None]
  - OSTEOMYELITIS [None]
  - CULTURE URINE POSITIVE [None]
  - MENTAL STATUS CHANGES [None]
  - DECUBITUS ULCER [None]
  - COLPOCELE [None]
  - LEUKOPENIA [None]
  - AZOTAEMIA [None]
  - THROMBOCYTOPENIA [None]
  - POST HERPETIC NEURALGIA [None]
  - ARTERIOSCLEROSIS [None]
  - BONE PAIN [None]
  - LENTIGO [None]
  - DIARRHOEA [None]
  - VOMITING [None]
  - CONFUSIONAL STATE [None]
  - INSOMNIA [None]
  - SKIN DISCOLOURATION [None]
  - KIDNEY SMALL [None]
  - MASTOIDITIS [None]
  - HERPES ZOSTER [None]
  - OTITIS MEDIA [None]
  - SEBORRHOEIC KERATOSIS [None]
  - NEOPLASM MALIGNANT [None]
  - NAUSEA [None]
  - LACERATION [None]
  - SKIN HAEMORRHAGE [None]
